FAERS Safety Report 8970139 (Version 1)
Quarter: 2012Q4

REPORT INFORMATION
  Report Type: 
  Country: US (occurrence: US)
  Receive Date: 20121218
  Receipt Date: 20121218
  Transmission Date: 20130627
  Serious: No
  Sender: FDA-Public Use
  Company Number: US-ABBOTT-12P-163-0921952-00

PATIENT
  Age: 53 Year
  Sex: Female

DRUGS (7)
  1. PROMETRIUM [Suspect]
     Indication: MENOPAUSAL SYMPTOMS
     Route: 048
     Dates: start: 201102, end: 201105
  2. PREMARIN [Concomitant]
     Indication: MENOPAUSAL SYMPTOMS
     Route: 048
     Dates: start: 2010
  3. ALBUTEROL [Concomitant]
     Indication: BRONCHITIS CHRONIC
  4. SYNTHROID [Concomitant]
     Indication: HYPOTHYROIDISM
  5. RANITIDINE [Concomitant]
     Indication: GASTROOESOPHAGEAL REFLUX DISEASE
  6. VITAMINS [Concomitant]
     Indication: VITAMIN SUPPLEMENTATION
  7. ESTRADIOL [Concomitant]
     Indication: MENOPAUSAL SYMPTOMS
     Route: 067
     Dates: start: 2011

REACTIONS (2)
  - Dry mouth [Recovered/Resolved]
  - Lacrimation decreased [Recovered/Resolved]
